FAERS Safety Report 24614237 (Version 2)
Quarter: 2025Q1

REPORT INFORMATION
  Report Type: Spontaneous
  Country: US (occurrence: US)
  Receive Date: 20241113
  Receipt Date: 20250310
  Transmission Date: 20250409
  Serious: No
  Sender: JOHNSON AND JOHNSON
  Company Number: US-JNJFOC-20241119609

PATIENT
  Sex: Female

DRUGS (2)
  1. INVEGA HAFYERA [Suspect]
     Active Substance: PALIPERIDONE PALMITATE
     Indication: Product used for unknown indication
     Route: 030
  2. INVEGA HAFYERA [Suspect]
     Active Substance: PALIPERIDONE PALMITATE

REACTIONS (2)
  - Therapeutic product effect decreased [Unknown]
  - Drug level increased [Unknown]
